FAERS Safety Report 13324512 (Version 1)
Quarter: 2017Q1

REPORT INFORMATION
  Report Type: Spontaneous
  Country: CN (occurrence: CN)
  Receive Date: 20170310
  Receipt Date: 20170310
  Transmission Date: 20170428
  Serious: Yes (Hospitalization, Other)
  Sender: FDA-Public Use
  Company Number: CN-ELI_LILLY_AND_COMPANY-CN201703001945

PATIENT
  Age: 72 Year
  Sex: Female
  Weight: 70 kg

DRUGS (2)
  1. HUMALOG MIX50/50 [Suspect]
     Active Substance: INSULIN LISPRO
     Indication: BLOOD GLUCOSE INCREASED
     Dosage: UNK UNK, UNKNOWN
     Route: 065
  2. HUMALOG MIX50/50 [Suspect]
     Active Substance: INSULIN LISPRO
     Dosage: 10 U, BID
     Route: 058
     Dates: start: 20161203

REACTIONS (5)
  - Chest pain [Unknown]
  - Weight increased [Unknown]
  - Blood glucose increased [Unknown]
  - Eating disorder [Unknown]
  - Blood glucose decreased [Recovering/Resolving]

NARRATIVE: CASE EVENT DATE: 20161203
